FAERS Safety Report 25731971 (Version 1)
Quarter: 2025Q3

REPORT INFORMATION
  Report Type: Spontaneous
  Country: US (occurrence: None)
  Receive Date: 20250827
  Receipt Date: 20250827
  Transmission Date: 20251020
  Serious: Yes (Other)
  Sender: FDA-CTU
  Company Number: None

PATIENT
  Age: 55 Year
  Sex: Female

DRUGS (1)
  1. LENALIDOMIDE [Suspect]
     Active Substance: LENALIDOMIDE
     Indication: Plasma cell myeloma in remission
     Route: 048

REACTIONS (12)
  - Illness [None]
  - Nausea [None]
  - Food poisoning [None]
  - Fatigue [None]
  - Influenza [None]
  - Sinusitis [None]
  - Skin ulcer [None]
  - Weight decreased [None]
  - Blood potassium decreased [None]
  - Blood magnesium decreased [None]
  - Paraproteinaemia [None]
  - Therapy interrupted [None]
